FAERS Safety Report 11500074 (Version 1)
Quarter: 2015Q3

REPORT INFORMATION
  Report Type: Spontaneous
  Country: US (occurrence: None)
  Receive Date: 20150910
  Receipt Date: 20150910
  Transmission Date: 20151125
  Serious: No
  Sender: FDA-Public Use
  Company Number: 2014-PEL-000242

PATIENT
  Age: 7 Year
  Sex: Male

DRUGS (5)
  1. ALBUTEROL (SALBUTAMOL) [Concomitant]
     Active Substance: ALBUTEROL
  2. CORTICOSTEROIDS [Concomitant]
     Active Substance: CORTICOSTEROID NOS
  3. ISOFLURANE. [Suspect]
     Active Substance: ISOFLURANE
     Indication: STATUS ASTHMATICUS
     Route: 055
  4. TERBUTALINE [Concomitant]
     Active Substance: TERBUTALINE
  5. EPINEPHRINE. [Concomitant]
     Active Substance: EPINEPHRINE

REACTIONS (2)
  - Off label use [None]
  - Pupil fixed [None]
